FAERS Safety Report 12067797 (Version 1)
Quarter: 2016Q1

REPORT INFORMATION
  Report Type: Spontaneous
  Country: US (occurrence: US)
  Receive Date: 20160211
  Receipt Date: 20160211
  Transmission Date: 20160526
  Serious: No
  Sender: FDA-Public Use
  Company Number: US-SMITH AND NEPHEW, INC-2015SMT00067

PATIENT
  Age: 102 Year
  Sex: Female
  Weight: 45.35 kg

DRUGS (6)
  1. GENERIC PLAVIX [Concomitant]
     Active Substance: CLOPIDOGREL BISULFATE
  2. REGRANEX [Suspect]
     Active Substance: BECAPLERMIN
     Indication: WOUND
     Dosage: 1 DOSAGE UNITS, 1X/DAY
     Route: 061
     Dates: start: 20150417
  3. TYLENOL [Concomitant]
     Active Substance: ACETAMINOPHEN
  4. UNSPECIFIED UTI ANTIBIOTIC(S) [Concomitant]
     Dosage: UNK
  5. TRAMADOL. [Concomitant]
     Active Substance: TRAMADOL
     Dosage: UNK, AS NEEDED
  6. UNSPECIFIED THYROID MEDICATION(S) [Concomitant]

REACTIONS (3)
  - Procedural pain [Recovering/Resolving]
  - Pruritus [Unknown]
  - Off label use [Unknown]

NARRATIVE: CASE EVENT DATE: 201504
